FAERS Safety Report 8439109-4 (Version None)
Quarter: 2012Q2

REPORT INFORMATION
  Report Type: 
  Country: None (occurrence: None)
  Receive Date: 20120615
  Receipt Date: 20120606
  Transmission Date: 20120825
  Serious: Yes (Other)
  Sender: FDA-Public Use
  Company Number: US-JNJFOC-20120603514

PATIENT
  Sex: Female
  Weight: 95.26 kg

DRUGS (24)
  1. ESTRADIOL [Concomitant]
     Indication: HORMONE LEVEL ABNORMAL
     Route: 048
  2. LEVOTHROID [Concomitant]
     Indication: THYROID DISORDER
     Route: 048
  3. LEXAPRO [Concomitant]
     Indication: DEPRESSION
     Route: 048
  4. LISINOPRIL [Concomitant]
     Indication: BLOOD PRESSURE
     Route: 048
  5. AN UNKNOWN MEDICATION [Concomitant]
     Indication: ASTHMA
     Route: 055
  6. ZYRTEC [Concomitant]
     Indication: MULTIPLE ALLERGIES
     Route: 048
  7. AMITRIPTYLINE HCL [Concomitant]
     Indication: NEUROPATHY PERIPHERAL
     Dosage: AT BEDTIME
     Route: 048
  8. FIORICET [Concomitant]
     Indication: MIGRAINE
     Dosage: 50/325/40MG TID
     Route: 048
  9. PROTONIX [Concomitant]
     Indication: HYPERCHLORHYDRIA
     Route: 048
  10. AMBIEN [Concomitant]
     Indication: SLEEP DISORDER
     Dosage: AT BEDTIME
     Route: 048
  11. TOPAMAX [Concomitant]
     Indication: MIGRAINE
     Route: 048
  12. DURAGESIC-100 [Suspect]
     Indication: PAIN
     Route: 062
     Dates: start: 20010101, end: 20010101
  13. AMITRIPTYLINE HCL [Concomitant]
     Indication: DEPRESSION
     Dosage: AT BEDTIME
     Route: 048
  14. GABAPENTIN [Concomitant]
     Indication: NEUROPATHY PERIPHERAL
     Route: 048
  15. HYDROCODONE [Concomitant]
     Indication: PAIN
     Dosage: 7.5/325 MG TID AS NEEDED
     Route: 048
  16. KETOROLAC TROMETHAMINE [Concomitant]
     Indication: MIGRAINE
     Route: 048
  17. LAMOTRIGINE [Concomitant]
     Indication: MANIA
     Route: 048
  18. SOMA [Concomitant]
     Indication: MUSCLE SPASMS
     Route: 048
  19. XANAX [Concomitant]
     Indication: ANXIETY
     Route: 048
  20. FENTANYL-100 [Suspect]
     Indication: PAIN
     Route: 062
     Dates: start: 20120530
  21. BENTYL [Concomitant]
     Indication: GASTRIC DISORDER
     Route: 048
  22. PHENERGAN [Concomitant]
     Indication: NAUSEA
     Route: 048
  23. FLONASE [Concomitant]
     Indication: MULTIPLE ALLERGIES
     Route: 045
  24. SEROQUEL [Concomitant]
     Indication: MANIA
     Route: 048

REACTIONS (16)
  - PAIN [None]
  - FEELING COLD [None]
  - RASH ERYTHEMATOUS [None]
  - FEAR OF DEATH [None]
  - HEADACHE [None]
  - FEELING ABNORMAL [None]
  - HYPERHIDROSIS [None]
  - INFLUENZA LIKE ILLNESS [None]
  - VOMITING [None]
  - NAUSEA [None]
  - ADVERSE EVENT [None]
  - FEELING HOT [None]
  - DRUG INEFFECTIVE [None]
  - DIARRHOEA [None]
  - DRUG ADMINISTERED AT INAPPROPRIATE SITE [None]
  - PRODUCT QUALITY ISSUE [None]
